FAERS Safety Report 15594669 (Version 1)
Quarter: 2018Q4

REPORT INFORMATION
  Report Type: Spontaneous
  Country: US (occurrence: US)
  Receive Date: 20181106
  Receipt Date: 20181106
  Transmission Date: 20190205
  Serious: No
  Sender: FDA-Public Use
  Company Number: US-SA-2018SA302389

PATIENT
  Age: 49 Year
  Sex: Male

DRUGS (1)
  1. SOLIQUA 100/33 [Suspect]
     Active Substance: INSULIN GLARGINE\LIXISENATIDE
     Indication: TYPE 2 DIABETES MELLITUS
     Dosage: 40 U, QD

REACTIONS (6)
  - Device operational issue [Unknown]
  - Chest pain [Unknown]
  - Fatigue [Unknown]
  - Pain in extremity [Unknown]
  - Needle issue [Unknown]
  - Product storage error [Unknown]
